FAERS Safety Report 8544613-4 (Version None)
Quarter: 2012Q3

REPORT INFORMATION
  Report Type: 
  Country: None (occurrence: None)
  Receive Date: 20120727
  Receipt Date: 20111209
  Transmission Date: 20120928
  Serious: No
  Sender: FDA-Public Use
  Company Number: US-ASTRAZENECA-2011SE75192

PATIENT
  Age: 44 Year
  Sex: Male
  Weight: 97.5 kg

DRUGS (4)
  1. SYMBYAX [Concomitant]
     Indication: BIPOLAR DISORDER
  2. CRESTOR [Suspect]
     Indication: BLOOD CHOLESTEROL INCREASED
     Route: 048
  3. ATEROL [Concomitant]
     Indication: ATTENTION DEFICIT/HYPERACTIVITY DISORDER
  4. SEROQUEL XR [Suspect]
     Indication: BIPOLAR DISORDER
     Route: 048
     Dates: start: 20111101

REACTIONS (2)
  - DRUG DOSE OMISSION [None]
  - ACTIVITIES OF DAILY LIVING IMPAIRED [None]
